FAERS Safety Report 9551619 (Version 1)
Quarter: 2013Q3

REPORT INFORMATION
  Report Type: Spontaneous
  Country: US (occurrence: None)
  Receive Date: 20130923
  Receipt Date: 20130923
  Transmission Date: 20140515
  Serious: Yes (Life-Threatening)
  Sender: FDA-Public Use
  Company Number: None

PATIENT
  Age: 13 Year
  Sex: Male

DRUGS (1)
  1. OMNITROPE [Suspect]
     Dosage: OMNITROPE 10MG/1.5 ML CARTRIDGE
     Dates: start: 20120426

REACTIONS (5)
  - Depression [None]
  - Feelings of worthlessness [None]
  - Muscle spasms [None]
  - Weight decreased [None]
  - Hypophagia [None]
